FAERS Safety Report 8781040 (Version 1)
Quarter: 2012Q4

REPORT INFORMATION
  Report Type: 
  Country: DE (occurrence: DE)
  Receive Date: 20120913
  Receipt Date: 20120913
  Transmission Date: 20130627
  Serious: Yes (Other)
  Sender: FDA-Public Use
  Company Number: DE-JNJFOC-20120904705

PATIENT
  Age: 68 Year
  Sex: Female

DRUGS (2)
  1. REGAINE UNSPECIFIED [Suspect]
     Route: 061
  2. REGAINE UNSPECIFIED [Suspect]
     Indication: PRODUCT USED FOR UNKNOWN INDICATION
     Dosage: dose and frequency was unspecified
     Route: 061

REACTIONS (1)
  - Psoriasis [Recovered/Resolved]
